FAERS Safety Report 16367371 (Version 4)
Quarter: 2019Q3

REPORT INFORMATION
  Report Type: Spontaneous
  Country: US (occurrence: US)
  Receive Date: 20190529
  Receipt Date: 20190916
  Transmission Date: 20191004
  Serious: Yes (Hospitalization)
  Sender: FDA-Public Use
  Company Number: US-PFIZER INC-2019224843

PATIENT
  Age: 31 Year
  Sex: Female

DRUGS (1)
  1. ADVIL ALLERGY AND CONGESTION RELIEF [Suspect]
     Active Substance: CHLORPHENIRAMINE MALEATE\IBUPROFEN\PHENYLEPHRINE HYDROCHLORIDE
     Indication: MALAISE
     Dosage: 1 PILL AS TOLD ON BOX OF
     Dates: start: 20190523, end: 20190523

REACTIONS (4)
  - Cough [Recovered/Resolved]
  - Drug ineffective [Recovered/Resolved]
  - Skin erosion [Recovered/Resolved]
  - Sneezing [Recovered/Resolved]

NARRATIVE: CASE EVENT DATE: 2019
